FAERS Safety Report 8475780-9 (Version None)
Quarter: 2012Q2

REPORT INFORMATION
  Report Type: 
  Country: None (occurrence: None)
  Receive Date: 20120628
  Receipt Date: 20120618
  Transmission Date: 20120825
  Serious: No
  Sender: FDA-Public Use
  Company Number: JP-ASTRAZENECA-2012SE38768

PATIENT
  Age: 68 Year
  Sex: Male

DRUGS (3)
  1. MEROPENEM [Suspect]
     Route: 042
  2. MEROPENEM [Suspect]
     Route: 042
  3. MEROPENEM [Suspect]
     Indication: MENINGITIS BACTERIAL
     Route: 042

REACTIONS (4)
  - ANTIBIOTIC RESISTANT STAPHYLOCOCCUS TEST POSITIVE [None]
  - HEPATIC FUNCTION ABNORMAL [None]
  - ALANINE AMINOTRANSFERASE INCREASED [None]
  - ASPARTATE AMINOTRANSFERASE INCREASED [None]
